FAERS Safety Report 4778471-0 (Version None)
Quarter: 2005Q3

REPORT INFORMATION
  Report Type: 
  Country: None (occurrence: None)
  Receive Date: 20050922
  Receipt Date: 20050909
  Transmission Date: 20060218
  Serious: Yes (Other)
  Sender: FDA-Public Use
  Company Number: 2005125973

PATIENT
  Age: 62 Year
  Sex: Female
  Weight: 60.782 kg

DRUGS (4)
  1. LIPITOR [Suspect]
     Indication: CAROTID ARTERY OCCLUSION
     Dosage: 40 MG (40 MG, 1 IN 1 D), ORAL
     Route: 048
     Dates: end: 20050908
  2. TRAMADOL HCL [Concomitant]
  3. CLONIDINE [Concomitant]
  4. LISINOPRIL [Concomitant]

REACTIONS (19)
  - AEROPHAGIA [None]
  - BACK PAIN [None]
  - BLOOD PRESSURE INCREASED [None]
  - CARBON DIOXIDE DECREASED [None]
  - CONDITION AGGRAVATED [None]
  - CONSTIPATION [None]
  - DEAFNESS [None]
  - DYSPEPSIA [None]
  - FEELING ABNORMAL [None]
  - FLATULENCE [None]
  - HEADACHE [None]
  - HYPERVENTILATION [None]
  - INSOMNIA [None]
  - MEMORY IMPAIRMENT [None]
  - MUSCLE SPASMS [None]
  - MYOPATHY [None]
  - NEUROLOGICAL SYMPTOM [None]
  - PAIN [None]
  - SPINAL LAMINECTOMY [None]
